FAERS Safety Report 10337829 (Version 1)
Quarter: 2014Q3

REPORT INFORMATION
  Report Type: Spontaneous
  Country: CA (occurrence: CA)
  Receive Date: 20140724
  Receipt Date: 20140724
  Transmission Date: 20150326
  Serious: Yes (Death, Hospitalization)
  Sender: FDA-Public Use
  Company Number: CA-AMGEN-CANSP2014054453

PATIENT
  Age: 82 Year
  Sex: Female

DRUGS (1)
  1. ARANESP [Suspect]
     Active Substance: DARBEPOETIN ALFA
     Indication: RENAL FAILURE CHRONIC
     Dosage: 30 MUG, Q2WK
     Route: 065
     Dates: start: 20130725, end: 20140706

REACTIONS (2)
  - Eating disorder [Unknown]
  - Multi-organ failure [Fatal]

NARRATIVE: CASE EVENT DATE: 20140706
